FAERS Safety Report 23653191 (Version 4)
Quarter: 2024Q2

REPORT INFORMATION
  Report Type: Spontaneous
  Country: TW (occurrence: TW)
  Receive Date: 20240320
  Receipt Date: 20240515
  Transmission Date: 20240716
  Serious: Yes (Death, Life-Threatening, Other)
  Sender: FDA-Public Use
  Company Number: TW-PFIZER INC-PV202400036418

PATIENT
  Sex: Female
  Weight: 69 kg

DRUGS (34)
  1. ZYVOX [Suspect]
     Active Substance: LINEZOLID
     Indication: Enterococcal infection
     Dosage: 600 MG, Q12H
     Route: 041
     Dates: start: 20240210, end: 20240223
  2. ZYVOX [Suspect]
     Active Substance: LINEZOLID
     Indication: Staphylococcal infection
  3. PEGANONE [Concomitant]
     Active Substance: ETHOTOIN
     Dosage: UNK
  4. VALPROIC ACID [Concomitant]
     Active Substance: VALPROIC ACID
     Dosage: UNK
  5. PIRACETAM [Concomitant]
     Active Substance: PIRACETAM
     Dosage: UNK
  6. KEPPRA [Concomitant]
     Active Substance: LEVETIRACETAM
     Dosage: UNK
  7. ACETYLCYSTEINE [Concomitant]
     Active Substance: ACETYLCYSTEINE
     Dosage: UNK
  8. KCL [Concomitant]
     Active Substance: POTASSIUM CHLORIDE
     Dosage: UNK
  9. VITAMIN B COMPLEX [Concomitant]
     Active Substance: CYANOCOBALAMIN\DEXPANTHENOL\NIACINAMIDE\PYRIDOXINE HYDROCHLORIDE\RIBOFLAVIN 5^-PHOSPHATE SODIUM\THIA
     Dosage: UNK
  10. PANTOPRAZOLE [Concomitant]
     Active Substance: PANTOPRAZOLE
     Dosage: UNK
  11. SINTUM [Concomitant]
     Dosage: UNK
  12. SMECTA [Concomitant]
     Active Substance: MONTMORILLONITE
     Dosage: UNK
  13. MIDODRINE [Concomitant]
     Active Substance: MIDODRINE
     Dosage: UNK
  14. PIPERACILLIN SODIUM\TAZOBACTAM SODIUM [Concomitant]
     Active Substance: PIPERACILLIN SODIUM\TAZOBACTAM SODIUM
     Dosage: UNK
  15. BIOMYCIN [NEOMYCIN SULFATE;TYROTHRICIN] [Concomitant]
     Dosage: UNK
  16. SODIUM BISULFATE [Concomitant]
     Dosage: UNK
  17. VALPROATE SODIUM [Concomitant]
     Active Substance: VALPROATE SODIUM
     Dosage: 5 TIMES PER DAY
     Route: 048
  18. SYNTAM [Concomitant]
     Dosage: UNK
  19. ACTEIN [Concomitant]
     Dosage: UNK
  20. TRANSAMIN [Concomitant]
     Active Substance: TRANEXAMIC ACID
     Dosage: UNK
  21. NOREPINEPHRINE [Concomitant]
     Active Substance: NOREPINEPHRINE\NOREPINEPHRINE BITARTRATE
     Dosage: UNK
  22. LOPERAMIDE [Concomitant]
     Active Substance: LOPERAMIDE
     Dosage: UNK
  23. MIDODRINE HYDROCHLORIDE [Concomitant]
     Active Substance: MIDODRINE HYDROCHLORIDE
  24. DIETARY SUPPLEMENT\PROBIOTICS [Concomitant]
     Active Substance: DIETARY SUPPLEMENT\PROBIOTICS NOS
     Dosage: UNK
  25. PINE [HEPARIN SODIUM] [Concomitant]
     Dosage: 30ML RUN 1MIN
     Route: 042
     Dates: start: 20240216
  26. PINE [HEPARIN SODIUM] [Concomitant]
     Dosage: 2ML STAT IV, FOR PE ROUTING
     Dates: start: 20240220
  27. PENEM [CILASTATIN SODIUM;IMIPENEM] [Concomitant]
     Dosage: UNK
  28. MINERAL OIL [Concomitant]
     Active Substance: MINERAL OIL
     Dosage: UNK
  29. SODIUM BICARBONATE [Concomitant]
     Active Substance: SODIUM BICARBONATE
     Dosage: UNK
  30. COMBIVENT [Concomitant]
     Active Substance: ALBUTEROL SULFATE\IPRATROPIUM BROMIDE
     Dosage: UNK
  31. BISOLVON [Concomitant]
     Active Substance: BROMHEXINE HYDROCHLORIDE
     Dosage: UNK
  32. MEDASON [Concomitant]
     Dosage: UNK
  33. PANTOPRAZOLE SODIUM [Concomitant]
     Active Substance: PANTOPRAZOLE SODIUM
     Dosage: UNK
  34. VITAGEN [GLUCOSE] [Concomitant]
     Dosage: UNK

REACTIONS (6)
  - Thrombocytopenia [Fatal]
  - Lactic acidosis [Fatal]
  - Septic shock [Unknown]
  - Urosepsis [Unknown]
  - Dialysis hypotension [Unknown]
  - Haemoglobin decreased [Unknown]

NARRATIVE: CASE EVENT DATE: 20240201
